FAERS Safety Report 8901726 (Version 2)
Quarter: 2012Q4

REPORT INFORMATION
  Report Type: Spontaneous
  Country: US (occurrence: None)
  Receive Date: 20121102
  Receipt Date: 20121119
  Transmission Date: 20130627
  Serious: Yes (Hospitalization)
  Sender: FDA-Public Use
  Company Number: 2012US-004436

PATIENT
  Age: 77 Year
  Sex: Male

DRUGS (3)
  1. OMONTYS (PEGINESATIDE) SOLUTION FOR INJECTION [Suspect]
     Indication: NEPHROGENIC ANAEMIA
     Route: 042
     Dates: start: 20121008, end: 20121008
  2. LIQUACEL [Concomitant]
  3. MIDODRINE (MIDODRINE) [Concomitant]

REACTIONS (5)
  - Oesophageal hypomotility [None]
  - Nausea [None]
  - Vomiting [None]
  - Pleural effusion [None]
  - Pneumonia aspiration [None]
